FAERS Safety Report 6693016-6 (Version None)
Quarter: 2010Q2

REPORT INFORMATION
  Report Type: 
  Country: None (occurrence: None)
  Receive Date: 20100422
  Receipt Date: 20100408
  Transmission Date: 20101027
  Serious: Yes (Life-Threatening)
  Sender: FDA-Public Use
  Company Number: GR-MYLANLABS-2010S1005918

PATIENT
  Age: 65 Year
  Sex: Female
  Weight: 70 kg

DRUGS (8)
  1. EPIRUBICIN [Suspect]
     Indication: BREAST CANCER
     Route: 042
     Dates: start: 20100316
  2. EPIRUBICIN [Suspect]
     Dates: start: 20100407
  3. ONDANSETRON [Suspect]
     Indication: BREAST CANCER
     Dates: start: 20100316
  4. ONDANSETRON [Suspect]
     Dates: start: 20100407
  5. ENDOXAN [Suspect]
     Indication: BREAST CANCER
     Dates: start: 20100316
  6. ENDOXAN [Suspect]
     Dates: start: 20100407
  7. FLUOROURACILE [Suspect]
     Indication: BREAST CANCER
     Dates: start: 20100316
  8. FLUOROURACILE [Suspect]
     Dates: start: 20100407

REACTIONS (1)
  - NEUTROPENIA [None]
